FAERS Safety Report 9171043 (Version 3)
Quarter: 2013Q4

REPORT INFORMATION
  Report Type: Report from Study
  Country: BR (occurrence: BR)
  Receive Date: 20130319
  Receipt Date: 20131023
  Transmission Date: 20140711
  Serious: Yes (Disabling, Other)
  Sender: FDA-Public Use
  Company Number: BR-AMGEN-US367392

PATIENT
  Age: 33 Year
  Sex: Female
  Weight: 51 kg

DRUGS (7)
  1. ETANERCEPT [Suspect]
     Indication: ANKYLOSING SPONDYLITIS
     Dosage: 50 MG, 2X/WEEK
     Route: 058
     Dates: start: 20090619
  2. ETANERCEPT [Suspect]
     Dosage: 25 MG, 2X/WEEK
     Route: 058
     Dates: start: 200909, end: 201206
  3. ETANERCEPT [Suspect]
     Dosage: UNK
     Route: 065
     Dates: start: 201207, end: 201302
  4. METHOTREXATE [Concomitant]
     Indication: ANKYLOSING SPONDYLITIS
     Dosage: UNK
     Dates: end: 201211
  5. PANTOPRAZOLE [Concomitant]
     Dosage: UNK
  6. NORIPURUM [Concomitant]
     Indication: ANAEMIA
     Dosage: UNK
     Dates: start: 201209
  7. GERIATON                           /07429501/ [Concomitant]
     Indication: ANAEMIA
     Dosage: UNK
     Dates: start: 201209

REACTIONS (36)
  - Dizziness [Unknown]
  - Decreased immune responsiveness [Unknown]
  - Oral disorder [Unknown]
  - Dry mouth [Unknown]
  - Sensitivity of teeth [Unknown]
  - Malaise [Unknown]
  - Blood pressure decreased [Recovered/Resolved]
  - Tooth disorder [Unknown]
  - Headache [Unknown]
  - Local swelling [Unknown]
  - Cough [Unknown]
  - Somnolence [Unknown]
  - Gingival pain [Unknown]
  - Increased appetite [Unknown]
  - Polyuria [Unknown]
  - Presyncope [Unknown]
  - Abasia [Unknown]
  - Hair texture abnormal [Unknown]
  - Menorrhagia [Recovered/Resolved]
  - Onychoclasis [Unknown]
  - Asthenia [Unknown]
  - Pain [Unknown]
  - Subcutaneous abscess [Unknown]
  - Furuncle [Not Recovered/Not Resolved]
  - Hypersensitivity [Unknown]
  - Head discomfort [Unknown]
  - Neck pain [Unknown]
  - Eye irritation [Unknown]
  - Eye pain [Unknown]
  - Limb injury [Unknown]
  - Joint injury [Unknown]
  - Weight increased [Unknown]
  - Hypoaesthesia [Unknown]
  - Anaemia [Unknown]
  - Infection [Unknown]
  - Influenza [Unknown]
